FAERS Safety Report 17912093 (Version 6)
Quarter: 2020Q4

REPORT INFORMATION
  Report Type: Spontaneous
  Country: SK (occurrence: SK)
  Receive Date: 20200618
  Receipt Date: 20201130
  Transmission Date: 20210113
  Serious: Yes (Hospitalization, Other)
  Sender: FDA-Public Use
  Company Number: SK-BRISTOL-MYERS SQUIBB COMPANY-BMS-2020-047354

PATIENT
  Age: 68 Year
  Sex: Male
  Weight: 115 kg

DRUGS (17)
  1. TRIMETAZIDINE HYDROCHLORIDE [Concomitant]
     Active Substance: TRIMETAZIDINE DIHYDROCHLORIDE
     Indication: CARDIOVASCULAR DISORDER
     Dosage: 35 MILLIGRAM, BID
     Route: 048
     Dates: start: 2006
  2. FRAGMIN [Concomitant]
     Active Substance: DALTEPARIN SODIUM
     Indication: MYOCARDIAL ISCHAEMIA
     Dosage: 1000 J, QD
     Route: 058
     Dates: start: 20200605
  3. VALSARTAN. [Concomitant]
     Active Substance: VALSARTAN
     Indication: CARDIOVASCULAR DISORDER
     Dosage: 160 MILLIGRAM, QD
     Route: 048
     Dates: start: 2006
  4. ATORVASTATIN CALCIUM. [Concomitant]
     Active Substance: ATORVASTATIN CALCIUM
     Indication: DYSLIPIDAEMIA
     Dosage: 40 MILLIGRAM, QD
     Route: 048
     Dates: start: 2006
  5. DALTEPARINUM NATRICUM [Concomitant]
     Indication: MYOCARDIAL ISCHAEMIA
     Dosage: 1000 J, QD
     Dates: start: 20200605
  6. ELIQUIS [Suspect]
     Active Substance: APIXABAN
     Dosage: 5 MILLIGRAM, BID
     Route: 048
     Dates: start: 20200622
  7. METFORMIN [Concomitant]
     Active Substance: METFORMIN HYDROCHLORIDE
     Indication: DIABETES MELLITUS
     Dosage: 100 MILLIGRAM, TID
     Route: 048
     Dates: start: 2006
  8. NITRE [Concomitant]
     Indication: CARDIOVASCULAR DISORDER
     Dosage: 5 MILLIGRAM, BID
     Route: 048
     Dates: start: 2006
  9. NAFTIDROFURYL [Concomitant]
     Active Substance: NAFRONYL
     Indication: CARDIOVASCULAR DISORDER
     Dosage: UNK
     Route: 065
     Dates: start: 2006
  10. CARVEDILOL. [Concomitant]
     Active Substance: CARVEDILOL
     Indication: CARDIOVASCULAR DISORDER
     Dosage: 12.5 MILLIGRAM, BID
     Route: 048
     Dates: start: 2006
  11. LEUPRORELIN [Concomitant]
     Active Substance: LEUPROLIDE ACETATE
     Indication: PROSTATE CANCER
     Dosage: 5 MILLIGRAM, Q3MO (EVERY 3 MONTHS)
     Route: 058
     Dates: start: 20170808
  12. EMPAGLIFLOZIN [Concomitant]
     Active Substance: EMPAGLIFLOZIN
     Indication: DIABETES MELLITUS
     Dosage: 25 MILLIGRAM, BID
     Route: 048
     Dates: start: 2006
  13. HYDROCHLOROTHIAZIDE. [Concomitant]
     Active Substance: HYDROCHLOROTHIAZIDE
     Indication: CARDIOVASCULAR DISORDER
     Dosage: 12.5 MILLIGRAM, QD
     Route: 048
     Dates: start: 2006
  14. ELIQUIS [Suspect]
     Active Substance: APIXABAN
     Indication: CARDIOVASCULAR DISORDER
     Dosage: 5 MILLIGRAM, BID
     Route: 048
     Dates: start: 20171122, end: 20200601
  15. THIOCTATE TROMETAMOL [Concomitant]
     Indication: DIABETES MELLITUS
     Dosage: 600 MILLIGRAM, QD
     Route: 048
     Dates: start: 2006
  16. GLIMEPRID [Concomitant]
     Active Substance: GLIMEPIRIDE
     Indication: DIABETES MELLITUS
     Dosage: 1.5 MILLIGRAM, QD
     Route: 048
     Dates: start: 2006
  17. DRONEDARONE HYDROCHLORIDE [Concomitant]
     Active Substance: DRONEDARONE HYDROCHLORIDE
     Indication: CARDIOVASCULAR DISORDER
     Dosage: 400 MILLIGRAM, QD
     Route: 048
     Dates: start: 20171122

REACTIONS (3)
  - Urinary retention [Recovered/Resolved]
  - Renal impairment [Recovered/Resolved]
  - Haematuria [Recovered/Resolved]

NARRATIVE: CASE EVENT DATE: 20200601
